FAERS Safety Report 23329181 (Version 1)
Quarter: 2023Q4

REPORT INFORMATION
  Report Type: Spontaneous
  Country: IT (occurrence: IT)
  Receive Date: 20231222
  Receipt Date: 20231222
  Transmission Date: 20240109
  Serious: Yes (Other)
  Sender: FDA-Public Use
  Company Number: IT-009507513-2308ITA007534

PATIENT
  Age: 28 Year
  Sex: Female

DRUGS (3)
  1. CARBOPLATIN [Suspect]
     Active Substance: CARBOPLATIN
     Indication: Triple negative breast cancer
     Dosage: 103 MILLIGRAM, QW, ONGOING AS PER PROTOCOL, ROUTE OF ADMINISTRATION: ^EV^NULL
     Route: 065
     Dates: start: 20230327
  2. PACLITAXEL [Suspect]
     Active Substance: PACLITAXEL
     Indication: Product used for unknown indication
     Dosage: 93 MILLIGRAM, QW, ONGOING AS PER PROTOCOL, ROUTE OF ADMINISTRATION: ^EV^NULL
     Route: 065
     Dates: start: 20230327
  3. PEMBROLIZUMAB [Suspect]
     Active Substance: PEMBROLIZUMAB
     Indication: Triple negative breast cancer
     Dosage: 200 MILLIGRAM, Q3W, ROUTE OF ADMINISTRATION: ^EV^NULL
     Route: 065
     Dates: start: 20230327, end: 20230509

REACTIONS (1)
  - Drug-induced liver injury [Recovered/Resolved]

NARRATIVE: CASE EVENT DATE: 20230525
